FAERS Safety Report 25998550 (Version 1)
Quarter: 2025Q4

REPORT INFORMATION
  Report Type: Spontaneous
  Country: US (occurrence: US)
  Receive Date: 20251105
  Receipt Date: 20251105
  Transmission Date: 20260118
  Serious: Yes (Hospitalization, Other)
  Sender: APOTEX
  Company Number: US-APOTEX-2025AP032006

PATIENT
  Age: 17 Year
  Sex: Female

DRUGS (2)
  1. ACETAMINOPHEN [Suspect]
     Active Substance: ACETAMINOPHEN
     Indication: Tooth abscess
     Dosage: UNK
     Route: 048
  2. IBUPROFEN [Suspect]
     Active Substance: IBUPROFEN
     Indication: Tooth abscess
     Dosage: UNK
     Route: 048

REACTIONS (10)
  - Acute kidney injury [Recovering/Resolving]
  - Nausea [Recovering/Resolving]
  - Vomiting [Recovering/Resolving]
  - Pyrexia [Recovering/Resolving]
  - Dyspnoea [Recovering/Resolving]
  - Chills [Recovering/Resolving]
  - Hypoaesthesia [Recovering/Resolving]
  - Overdose [Unknown]
  - Toxicity to various agents [Recovering/Resolving]
  - Acute hepatic failure [Recovering/Resolving]
